FAERS Safety Report 25166792 (Version 1)
Quarter: 2025Q2

REPORT INFORMATION
  Report Type: Spontaneous
  Country: FR (occurrence: FR)
  Receive Date: 20250407
  Receipt Date: 20250407
  Transmission Date: 20250716
  Serious: Yes (Other)
  Sender: MYLAN
  Company Number: None

PATIENT
  Age: 30 Year
  Sex: Male

DRUGS (20)
  1. PREGABALIN [Suspect]
     Active Substance: PREGABALIN
     Indication: Product used for unknown indication
  2. PREGABALIN [Suspect]
     Active Substance: PREGABALIN
     Route: 065
  3. PREGABALIN [Suspect]
     Active Substance: PREGABALIN
     Route: 065
  4. PREGABALIN [Suspect]
     Active Substance: PREGABALIN
  5. CANNABIS SATIVA SUBSP. INDICA TOP [Suspect]
     Active Substance: CANNABIS SATIVA SUBSP. INDICA TOP
  6. CANNABIS SATIVA SUBSP. INDICA TOP [Suspect]
     Active Substance: CANNABIS SATIVA SUBSP. INDICA TOP
     Route: 065
  7. CANNABIS SATIVA SUBSP. INDICA TOP [Suspect]
     Active Substance: CANNABIS SATIVA SUBSP. INDICA TOP
     Route: 065
  8. CANNABIS SATIVA SUBSP. INDICA TOP [Suspect]
     Active Substance: CANNABIS SATIVA SUBSP. INDICA TOP
  9. COCAINE [Suspect]
     Active Substance: COCAINE
     Indication: Product used for unknown indication
  10. COCAINE [Suspect]
     Active Substance: COCAINE
     Route: 065
  11. COCAINE [Suspect]
     Active Substance: COCAINE
     Route: 065
  12. COCAINE [Suspect]
     Active Substance: COCAINE
  13. CLONAZEPAM [Suspect]
     Active Substance: CLONAZEPAM
     Indication: Product used for unknown indication
  14. CLONAZEPAM [Suspect]
     Active Substance: CLONAZEPAM
     Route: 065
  15. CLONAZEPAM [Suspect]
     Active Substance: CLONAZEPAM
     Route: 065
  16. CLONAZEPAM [Suspect]
     Active Substance: CLONAZEPAM
  17. DIAZEPAM [Suspect]
     Active Substance: DIAZEPAM
     Indication: Product used for unknown indication
  18. DIAZEPAM [Suspect]
     Active Substance: DIAZEPAM
     Route: 065
  19. DIAZEPAM [Suspect]
     Active Substance: DIAZEPAM
     Route: 065
  20. DIAZEPAM [Suspect]
     Active Substance: DIAZEPAM

REACTIONS (4)
  - Drug use disorder [Unknown]
  - Substance use disorder [Unknown]
  - Altered state of consciousness [Recovered/Resolved]
  - Miosis [Recovered/Resolved]

NARRATIVE: CASE EVENT DATE: 20241211
